FAERS Safety Report 6510786-8 (Version None)
Quarter: 2009Q4

REPORT INFORMATION
  Report Type: 
  Country: None (occurrence: None)
  Receive Date: 20091222
  Receipt Date: 20091127
  Transmission Date: 20100525
  Serious: Yes (Hospitalization, Other)
  Sender: FDA-Public Use
  Company Number: CA-ROCHE-652533

PATIENT
  Sex: Male

DRUGS (6)
  1. BEVACIZUMAB [Suspect]
     Indication: LUNG CANCER METASTATIC
     Dosage: FORM: INFUSION
     Route: 042
     Dates: start: 20090715, end: 20090827
  2. ALIMTA [Concomitant]
     Indication: LUNG CANCER METASTATIC
     Dosage: STOP DATE REPORTED AS 2009
     Route: 042
     Dates: start: 20090715
  3. MONOCOR [Concomitant]
  4. RESTORIL [Concomitant]
  5. ASPIRIN [Concomitant]
  6. CARBOPLATIN [Concomitant]
     Dosage: STOP DATE: 2009
     Route: 042
     Dates: start: 20090715

REACTIONS (5)
  - ARTHRALGIA [None]
  - BLOOD CREATININE INCREASED [None]
  - HYPERTENSION [None]
  - PAIN IN EXTREMITY [None]
  - WHITE BLOOD CELL COUNT INCREASED [None]
